FAERS Safety Report 4688878-8 (Version None)
Quarter: 2005Q2

REPORT INFORMATION
  Report Type: 
  Country: None (occurrence: None)
  Receive Date: 20050613
  Receipt Date: 20050530
  Transmission Date: 20051028
  Serious: Yes (Other)
  Sender: FDA-Public Use
  Company Number: JP-JNJFOC-20050600656

PATIENT
  Sex: Female

DRUGS (1)
  1. ITRIZOLE [Suspect]
     Indication: ONYCHOMYCOSIS
     Route: 049

REACTIONS (3)
  - LIVER FUNCTION TEST ABNORMAL [None]
  - PANCREATIC DISORDER [None]
  - RENAL FUNCTION TEST ABNORMAL [None]
